FAERS Safety Report 8055948-6 (Version None)
Quarter: 2011Q4

REPORT INFORMATION
  Report Type: 
  Country: None (occurrence: None)
  Receive Date: 20111216
  Receipt Date: 20101218
  Transmission Date: 20120403
  Serious: Yes (Other)
  Sender: FDA-Public Use
  Company Number: 260310USA

PATIENT
  Age: 31 Year
  Sex: Female
  Weight: 60.782 kg

DRUGS (1)
  1. PARAGARD T 380A [Suspect]
     Indication: CONTRACEPTION
     Dosage: I.U.
     Dates: start: 20100516, end: 20100526

REACTIONS (1)
  - UTERINE PERFORATION [None]
